FAERS Safety Report 6384583-0 (Version None)
Quarter: 2009Q4

REPORT INFORMATION
  Report Type: 
  Country: None (occurrence: None)
  Receive Date: 20091001
  Receipt Date: 20090918
  Transmission Date: 20100525
  Serious: Yes (Other)
  Sender: FDA-Public Use
  Company Number: PHHY2009BR38339

PATIENT
  Sex: Female
  Weight: 90 kg

DRUGS (6)
  1. DIOVAN AMLO FIX [Suspect]
     Indication: HYPERTENSION
     Dosage: 1 TABLET DAILY AT 07:00 AM
     Route: 048
     Dates: end: 20090830
  2. DIGOXIN [Concomitant]
     Indication: DYSPNOEA
     Dosage: 1 TABLET DAILY
     Route: 048
  3. METFORMIN HCL [Concomitant]
     Indication: DIABETES MELLITUS
     Dosage: 850 MG, BID
     Route: 048
  4. GLIMEPIRIDA [Concomitant]
     Indication: DIABETES MELLITUS
     Dosage: 1 TABLET DAILY
     Route: 048
  5. LASIX [Concomitant]
     Indication: ERYSIPELAS
     Dosage: 1 TABLET DAILY
     Route: 048
  6. BENZETACIL [Concomitant]
     Indication: ERYSIPELAS
     Dosage: 1 INJECTION MONTHLY
     Route: 030
     Dates: start: 19940101

REACTIONS (6)
  - DYSPNOEA [None]
  - INSOMNIA [None]
  - LOCAL SWELLING [None]
  - NECK PAIN [None]
  - NIGHT BLINDNESS [None]
  - SWELLING FACE [None]
